FAERS Safety Report 19814297 (Version 1)
Quarter: 2021Q3

REPORT INFORMATION
  Report Type: Spontaneous
  Country: CA (occurrence: CA)
  Receive Date: 20210910
  Receipt Date: 20210910
  Transmission Date: 20211014
  Serious: Yes (Hospitalization)
  Sender: FDA-Public Use
  Company Number: CA-TEVA-2021-CA-1949369

PATIENT
  Age: 16 Year
  Sex: Female

DRUGS (9)
  1. ARIPIPRAZOLE. [Concomitant]
     Active Substance: ARIPIPRAZOLE
  2. ATOMOXETINE. [Concomitant]
     Active Substance: ATOMOXETINE HYDROCHLORIDE
  3. PROPRANOLOL [Concomitant]
     Active Substance: PROPRANOLOL HYDROCHLORIDE
  4. TRAZODONE [Concomitant]
     Active Substance: TRAZODONE HYDROCHLORIDE
  5. MARVELON [Concomitant]
     Active Substance: DESOGESTREL\ETHINYL ESTRADIOL
  6. GABAPENTIN. [Suspect]
     Active Substance: GABAPENTIN
     Indication: BEHAVIOUR DISORDER
     Dosage: 300 MILLIGRAM DAILY;
     Route: 065
  7. QUETIAPINE. [Concomitant]
     Active Substance: QUETIAPINE
  8. RISPERIDONE. [Concomitant]
     Active Substance: RISPERIDONE
  9. GABAPENTIN. [Suspect]
     Active Substance: GABAPENTIN
     Indication: ANXIETY
     Dosage: 600 MILLIGRAM DAILY;

REACTIONS (5)
  - Aggression [Unknown]
  - Intentional self-injury [Unknown]
  - Irritability [Unknown]
  - Personality disorder [Unknown]
  - Paradoxical drug reaction [Unknown]
